FAERS Safety Report 21932253 (Version 1)
Quarter: 2023Q1

REPORT INFORMATION
  Report Type: Spontaneous
  Country: US (occurrence: None)
  Receive Date: 20230131
  Receipt Date: 20230131
  Transmission Date: 20230417
  Serious: No
  Sender: FDA-Public Use
  Company Number: None

PATIENT
  Age: 79 Year
  Sex: Male

DRUGS (1)
  1. AMBRISENTAN [Suspect]
     Active Substance: AMBRISENTAN
     Dosage: 10MG DAILY ORAL
     Route: 048

REACTIONS (4)
  - Intentional product misuse [None]
  - Wrong technique in product usage process [None]
  - Incorrect dose administered [None]
  - Intentional dose omission [None]

NARRATIVE: CASE EVENT DATE: 20230117
